FAERS Safety Report 5535915-4 (Version None)
Quarter: 2007Q4

REPORT INFORMATION
  Report Type: 
  Country: None (occurrence: None)
  Receive Date: 20071206
  Receipt Date: 20071126
  Transmission Date: 20080405
  Serious: Yes (Hospitalization)
  Sender: FDA-Public Use
  Company Number: FR-WYE-H01421607

PATIENT
  Age: 72 Year
  Sex: Female

DRUGS (3)
  1. INIPOMP [Suspect]
     Indication: GASTRIC ULCER
     Route: 048
     Dates: start: 20070815, end: 20070830
  2. INIPOMP [Suspect]
     Route: 048
     Dates: start: 20070831, end: 20070901
  3. INIPOMP [Suspect]
     Dosage: DF
     Route: 042
     Dates: start: 20070902, end: 20070905

REACTIONS (1)
  - INAPPROPRIATE ANTIDIURETIC HORMONE SECRETION [None]
